FAERS Safety Report 8761903 (Version 1)
Quarter: 2012Q4

REPORT INFORMATION
  Report Type: 
  Country: NO (occurrence: NO)
  Receive Date: 20120830
  Receipt Date: 20120830
  Transmission Date: 20130627
  Serious: Yes (Other)
  Sender: FDA-Public Use
  Company Number: NO-PFIZER INC-2012210748

PATIENT
  Age: 31 Year
  Sex: Female

DRUGS (1)
  1. LYRICA [Suspect]
     Dosage: UNK

REACTIONS (6)
  - Suicidal ideation [Unknown]
  - Depression [Unknown]
  - Hostility [Unknown]
  - Mood swings [Unknown]
  - Panic attack [Unknown]
  - Weight increased [Recovering/Resolving]
